FAERS Safety Report 9836493 (Version 2)
Quarter: 2014Q1

REPORT INFORMATION
  Report Type: Spontaneous
  Country: AR (occurrence: AR)
  Receive Date: 20140123
  Receipt Date: 20140320
  Transmission Date: 20141002
  Serious: Yes (Other)
  Sender: FDA-Public Use
  Company Number: AR-AMGEN-ARGSP2014004323

PATIENT
  Age: 49 Year
  Sex: Female

DRUGS (3)
  1. ENBREL [Suspect]
     Indication: RHEUMATOID ARTHRITIS
     Dosage: 50 MG, WEEKLY
     Route: 058
     Dates: start: 20130201
  2. METHOTREXAT                        /00113801/ [Concomitant]
     Dosage: 15 MG, WEEKLY
     Route: 048
  3. T4 [Concomitant]
     Indication: HYPOTHYROIDISM
     Dosage: 75 MG, DAILY

REACTIONS (1)
  - Arthropathy [Recovered/Resolved]
